FAERS Safety Report 25961237 (Version 1)
Quarter: 2025Q4

REPORT INFORMATION
  Report Type: Spontaneous
  Country: US (occurrence: US)
  Receive Date: 20251027
  Receipt Date: 20251027
  Transmission Date: 20260118
  Serious: No
  Sender: ABBVIE
  Company Number: US-ABBVIE-6519943

PATIENT

DRUGS (1)
  1. VENCLEXTA [Suspect]
     Active Substance: VENETOCLAX
     Indication: Product used for unknown indication
     Dosage: FREQUENCY: UNKNOWN?START DATE: UNKNOWN?STOP DATE: UNKNOWN
     Route: 048

REACTIONS (1)
  - Dizziness [Unknown]
